FAERS Safety Report 10524478 (Version 1)
Quarter: 2014Q4

REPORT INFORMATION
  Report Type: Spontaneous
  Country: US (occurrence: None)
  Receive Date: 20141015
  Receipt Date: 20141015
  Transmission Date: 20150528
  Serious: Yes (Life-Threatening, Hospitalization)
  Sender: FDA-Public Use
  Company Number: None

PATIENT
  Age: 64 Year
  Sex: Male
  Weight: 150.7 kg

DRUGS (2)
  1. AMIODARONE [Suspect]
     Active Substance: AMIODARONE
     Indication: CARDIAC FAILURE CONGESTIVE
     Route: 048
     Dates: start: 20140805, end: 20140807
  2. SOTALOL. [Suspect]
     Active Substance: SOTALOL
     Indication: ATRIAL FIBRILLATION
     Route: 048
     Dates: start: 20140420, end: 20140807

REACTIONS (10)
  - Contraindication to medical treatment [None]
  - Electrocardiogram QT prolonged [None]
  - Atrial fibrillation [None]
  - Dizziness [None]
  - Asthenia [None]
  - Dehydration [None]
  - Acute prerenal failure [None]
  - Bradycardia [None]
  - Diarrhoea [None]
  - Palpitations [None]

NARRATIVE: CASE EVENT DATE: 20140801
